FAERS Safety Report 4616294-3 (Version None)
Quarter: 2005Q1

REPORT INFORMATION
  Report Type: 
  Country: None (occurrence: None)
  Receive Date: 20050321
  Receipt Date: 20050311
  Transmission Date: 20050727
  Serious: Yes (Other)
  Sender: FDA-Public Use
  Company Number: 2004076008

PATIENT
  Sex: Female
  Weight: 42.6381 kg

DRUGS (6)
  1. LIPITOR [Suspect]
     Indication: BLOOD CHOLESTEROL
     Dosage: 40 MG (40 MG, 1 IN 1 D), ORAL
     Route: 048
     Dates: start: 19970701
  2. EZETIMIBE (EZETIMIBE) [Concomitant]
  3. NICOTINIC ACID [Concomitant]
  4. ASPIRIN [Concomitant]
  5. ALENDRONATE SODIUM [Concomitant]
  6. MULTIVITAMIS (ASCORBIC ACID, ERGOCALCIFEROL, FOLIC ACID, NICOTINAMIDE, [Concomitant]

REACTIONS (10)
  - ANAEMIA [None]
  - ASCITES [None]
  - BREAST NEOPLASM [None]
  - COELIAC DISEASE [None]
  - CONSTIPATION [None]
  - FATIGUE [None]
  - HEPATIC CYST [None]
  - HEPATIC ENZYME ABNORMAL [None]
  - LYMPHADENOPATHY [None]
  - PANCREATIC MASS [None]
